FAERS Safety Report 23572509 (Version 4)
Quarter: 2024Q3

REPORT INFORMATION
  Report Type: Report from Study
  Country: US (occurrence: US)
  Receive Date: 20240227
  Receipt Date: 20240926
  Transmission Date: 20241016
  Serious: No
  Sender: SANDOZ
  Company Number: US-SANDOZ-SDZ2024US019606

PATIENT
  Age: 10 Year
  Sex: Female

DRUGS (6)
  1. OMNITROPE [Suspect]
     Active Substance: SOMATROPIN
     Indication: Hypopituitarism
     Dosage: 1.2 MG, QD
     Route: 058
     Dates: start: 20230824
  2. OMNITROPE [Suspect]
     Active Substance: SOMATROPIN
     Indication: Hypopituitarism
     Dosage: 1.2 MG, QD
     Route: 058
     Dates: start: 20230824
  3. OMNITROPE [Suspect]
     Active Substance: SOMATROPIN
     Indication: Hypopituitarism
     Dosage: 1.6 MG FOR THREE WEEKS (TITER DOSE SLOWLY FROM 1.0 TO 1.6MG IN 0.2MG)
     Route: 058
     Dates: start: 20240117
  4. OMNITROPE [Suspect]
     Active Substance: SOMATROPIN
     Indication: Hypopituitarism
     Dosage: 1.6 MG FOR THREE WEEKS (TITER DOSE SLOWLY FROM 1.0 TO 1.6MG IN 0.2MG)
     Route: 058
     Dates: start: 20240117
  5. OMNITROPE [Suspect]
     Active Substance: SOMATROPIN
     Dosage: 1 MG, QD  FOR TWO WEEKS A
     Route: 065
  6. OMNITROPE [Suspect]
     Active Substance: SOMATROPIN
     Dosage: 1 MG, QD  FOR TWO WEEKS A
     Route: 065

REACTIONS (6)
  - Headache [Unknown]
  - Incorrect dose administered [Not Recovered/Not Resolved]
  - Drug dose omission by device [Unknown]
  - Product storage error [Unknown]
  - Wrong technique in device usage process [Unknown]
  - Device leakage [Unknown]

NARRATIVE: CASE EVENT DATE: 20240922
